FAERS Safety Report 7320756-8 (Version None)
Quarter: 2011Q1

REPORT INFORMATION
  Report Type: 
  Country: None (occurrence: None)
  Receive Date: 20110228
  Receipt Date: 20110216
  Transmission Date: 20110831
  Serious: Yes (Hospitalization)
  Sender: FDA-Public Use
  Company Number: US-ELI_LILLY_AND_COMPANY-US201102004712

PATIENT
  Sex: Female

DRUGS (2)
  1. SYNTHROID [Concomitant]
  2. FORTEO [Suspect]
     Indication: OSTEOPOROSIS
     Dosage: 20 UG, DAILY (1/D)
     Route: 065
     Dates: start: 20100408, end: 20100817

REACTIONS (6)
  - SOMNOLENCE [None]
  - BALANCE DISORDER [None]
  - FATIGUE [None]
  - BLOOD CALCIUM INCREASED [None]
  - DRY MOUTH [None]
  - GAIT DISTURBANCE [None]
